FAERS Safety Report 8621269-3 (Version None)
Quarter: 2012Q3

REPORT INFORMATION
  Report Type: 
  Country: None (occurrence: None)
  Receive Date: 20120824
  Receipt Date: 20120822
  Transmission Date: 20120928
  Serious: Yes (Life-Threatening)
  Sender: FDA-Public Use
  Company Number: DE-B.I. PHARMACEUTICALS,INC./RIDGEFIELD-2012-DE-01991DE

PATIENT
  Age: 76 Year
  Sex: Female
  Weight: 50 kg

DRUGS (2)
  1. AGGRENOX [Suspect]
     Dosage: 2 ANZ
  2. TOLPERISON HEXAL [Concomitant]
     Indication: MUSCLE SPASMS
     Dosage: 150 MG
     Route: 048
     Dates: start: 20120101, end: 20120102

REACTIONS (7)
  - OEDEMA MUCOSAL [None]
  - PRURITUS [None]
  - ORAL PRURITUS [None]
  - OEDEMA PERIPHERAL [None]
  - PARAESTHESIA MUCOSAL [None]
  - PARAESTHESIA [None]
  - RESPIRATORY DISTRESS [None]
